FAERS Safety Report 10896801 (Version 1)
Quarter: 2015Q1

REPORT INFORMATION
  Report Type: Spontaneous
  Country: US (occurrence: US)
  Receive Date: 20150309
  Receipt Date: 20150309
  Transmission Date: 20150721
  Serious: Yes (Death)
  Sender: FDA-Public Use
  Company Number: US-BANPHARM-20153680

PATIENT
  Age: 29 Year
  Sex: Male

DRUGS (8)
  1. COCAINE [Suspect]
     Active Substance: COCAINE
  2. HEROIN [Suspect]
     Active Substance: DIACETYLMORPHINE
  3. DIPHENHYDRAMINE UNKNOWN PRODUCT [Suspect]
     Active Substance: DIPHENHYDRAMINE
  4. QUININE [Suspect]
     Active Substance: QUININE
  5. BENZTROPINE [Suspect]
     Active Substance: BENZTROPINE
  6. SERTRALINE [Suspect]
     Active Substance: SERTRALINE HYDROCHLORIDE
  7. CODEINE [Suspect]
     Active Substance: CODEINE
  8. HYDROXYZINE [Suspect]
     Active Substance: HYDROXYZINE\HYDROXYZINE HYDROCHLORIDE

REACTIONS (1)
  - Drug abuse [Fatal]
